FAERS Safety Report 21031794 (Version 1)
Quarter: 2022Q3

REPORT INFORMATION
  Report Type: Spontaneous
  Country: GB (occurrence: GB)
  Receive Date: 20220701
  Receipt Date: 20220701
  Transmission Date: 20221027
  Serious: Yes (Other)
  Sender: FDA-Public Use
  Company Number: None

PATIENT
  Age: 39 Year
  Sex: Female

DRUGS (1)
  1. FINGOLIMOD [Suspect]
     Active Substance: FINGOLIMOD
     Indication: Multiple sclerosis
     Dosage: 0.5 MILLIGRAM, QD
     Route: 048
     Dates: start: 20210614

REACTIONS (15)
  - Multiple sclerosis relapse [Unknown]
  - Mobility decreased [Not Recovered/Not Resolved]
  - Fatigue [Not Recovered/Not Resolved]
  - COVID-19 [Unknown]
  - Mass [Unknown]
  - Feeling abnormal [Unknown]
  - Mydriasis [Unknown]
  - Visual impairment [Unknown]
  - Back pain [Unknown]
  - Breast mass [Unknown]
  - Insomnia [Unknown]
  - Scab [Unknown]
  - Fall [Unknown]
  - Premature menopause [Unknown]
  - Feeling hot [Unknown]
